FAERS Safety Report 13066177 (Version 1)
Quarter: 2016Q4

REPORT INFORMATION
  Report Type: Spontaneous
  Country: AU (occurrence: AU)
  Receive Date: 20161227
  Receipt Date: 20161227
  Transmission Date: 20170207
  Serious: Yes (Life-Threatening, Hospitalization)
  Sender: FDA-Public Use
  Company Number: AU-CELGENEUS-AUS-2016065187

PATIENT
  Age: 72 Year
  Sex: Male

DRUGS (39)
  1. ABRAXANE [Suspect]
     Active Substance: PACLITAXEL
     Indication: PANCREATIC CARCINOMA METASTATIC
     Dosage: NOT PROVIDED
     Route: 041
     Dates: start: 20151230
  2. GEMCITABINE [Suspect]
     Active Substance: GEMCITABINE\GEMCITABINE HYDROCHLORIDE
     Dosage: NOT PROVIDED
     Route: 065
     Dates: start: 20151230, end: 20160420
  3. DEXAMETHASONE. [Concomitant]
     Active Substance: DEXAMETHASONE
     Indication: PAPILLOEDEMA
     Route: 065
     Dates: start: 20160324
  4. HYDROCORTISONE. [Concomitant]
     Active Substance: HYDROCORTISONE
     Indication: CHEMOTHERAPY
     Route: 065
     Dates: start: 20160302
  5. PROMETHAZINE [Concomitant]
     Active Substance: PROMETHAZINE\PROMETHAZINE HYDROCHLORIDE
     Indication: RASH
  6. FRAGMIN [Concomitant]
     Active Substance: DALTEPARIN SODIUM
     Indication: DEEP VEIN THROMBOSIS
     Route: 065
     Dates: start: 20160413
  7. PREDNISOLONE. [Concomitant]
     Active Substance: PREDNISOLONE
     Route: 065
     Dates: start: 20160608, end: 20160614
  8. PROBIOTIC [Concomitant]
     Active Substance: PROBIOTICS NOS
     Indication: SUPPLEMENTATION THERAPY
     Route: 065
     Dates: start: 20151221
  9. SOMAC [Concomitant]
     Active Substance: PANTOPRAZOLE SODIUM
     Indication: GASTROOESOPHAGEAL REFLUX DISEASE
     Route: 065
     Dates: start: 201506
  10. SUSTAGEN [Concomitant]
     Indication: DECREASED APPETITE
     Route: 065
     Dates: start: 201510
  11. NILSTAT [Concomitant]
     Active Substance: NYSTATIN
     Indication: STOMATITIS
     Route: 065
     Dates: start: 20160520, end: 20160520
  12. TAMULOSIN [Concomitant]
     Active Substance: TAMSULOSIN
     Indication: SEPSIS
     Route: 065
     Dates: start: 20160518, end: 20160705
  13. CREON [Concomitant]
     Active Substance: PANCRELIPASE AMYLASE\PANCRELIPASE LIPASE\PANCRELIPASE PROTEASE
     Indication: PANCREATIC INSUFFICIENCY
     Route: 065
     Dates: start: 20150924
  14. MEROPENEM. [Concomitant]
     Active Substance: MEROPENEM
     Indication: LUNG INFECTION
     Route: 065
     Dates: start: 20160429, end: 20160509
  15. PREDNISOLONE. [Concomitant]
     Active Substance: PREDNISOLONE
     Route: 065
     Dates: start: 20160616, end: 20160715
  16. PROMETHAZINE [Concomitant]
     Active Substance: PROMETHAZINE\PROMETHAZINE HYDROCHLORIDE
     Indication: RASH
     Route: 065
     Dates: start: 20160509, end: 20160601
  17. GEMCITABINE [Suspect]
     Active Substance: GEMCITABINE\GEMCITABINE HYDROCHLORIDE
     Indication: PANCREATIC CARCINOMA METASTATIC
     Dosage: NOT PROVIDED
     Route: 065
     Dates: start: 20151223
  18. FLUCONAZOLE. [Concomitant]
     Active Substance: FLUCONAZOLE
     Indication: SEPSIS
     Route: 065
     Dates: start: 20160520, end: 20160608
  19. XARELTO [Concomitant]
     Active Substance: RIVAROXABAN
     Indication: DEEP VEIN THROMBOSIS
  20. DESVENLAFAXIN [Concomitant]
     Indication: DEPRESSION
     Route: 065
     Dates: start: 20160429
  21. DEXAMETHASONE. [Concomitant]
     Active Substance: DEXAMETHASONE
     Indication: MACULAR DETACHMENT
  22. PRAMIN [Concomitant]
     Indication: GASTROOESOPHAGEAL REFLUX DISEASE
     Route: 065
     Dates: start: 20151221
  23. ERTAPENEM [Concomitant]
     Active Substance: ERTAPENEM
     Indication: SEPSIS
  24. METHYLPREDNISOLONE. [Concomitant]
     Active Substance: METHYLPREDNISOLONE
     Indication: PAPILLOEDEMA
     Route: 065
     Dates: start: 20160404
  25. PROMETHAZINE [Concomitant]
     Active Substance: PROMETHAZINE\PROMETHAZINE HYDROCHLORIDE
     Indication: RASH
  26. ABRAXANE [Suspect]
     Active Substance: PACLITAXEL
     Dosage: NOT PROVIDED
     Route: 041
     Dates: start: 20151223, end: 20160420
  27. DEMCIZUMAB [Suspect]
     Active Substance: DEMCIZUMAB
     Indication: PANCREATIC CARCINOMA METASTATIC
     Route: 065
     Dates: start: 20151223
  28. BIOTENE NOS [Concomitant]
     Active Substance: CETYLPYRIDINIUM CHLORIDE OR SODIUM FLUORIDE OR SODIUM MONOFLUOROPHOSPHATE OR GLUCOSE OXIDASE\LACTOFERRIN\LACTOPEROXIDASE BOVINE\LYSOZYME
     Indication: DRY MOUTH
     Route: 065
     Dates: start: 20160604, end: 20160604
  29. ERTAPENEM [Concomitant]
     Active Substance: ERTAPENEM
     Indication: LUNG INFECTION
     Route: 065
     Dates: start: 20160507, end: 20160615
  30. AVANZA [Concomitant]
     Active Substance: MIRTAZAPINE
     Indication: DEPRESSION
     Route: 065
     Dates: start: 20151207
  31. PREDNISOLONE. [Concomitant]
     Active Substance: PREDNISOLONE
     Indication: PAPILLOEDEMA
     Route: 065
     Dates: start: 20160404, end: 20160604
  32. PREDNISOLONE. [Concomitant]
     Active Substance: PREDNISOLONE
     Route: 065
     Dates: start: 20160605, end: 20160606
  33. LORATADINE. [Concomitant]
     Active Substance: LORATADINE
     Indication: RASH
     Route: 065
     Dates: start: 20160510, end: 20160514
  34. PARACETAMOL [Concomitant]
     Active Substance: ACETAMINOPHEN
     Indication: PYREXIA
     Route: 065
     Dates: start: 20160501, end: 20160523
  35. DEXAMETHASONE. [Concomitant]
     Active Substance: DEXAMETHASONE
     Indication: CHEMOTHERAPY
  36. KENALOG [Concomitant]
     Active Substance: TRIAMCINOLONE ACETONIDE
     Indication: STOMATITIS
     Route: 065
     Dates: start: 20160520, end: 20160523
  37. LORATADINE. [Concomitant]
     Active Substance: LORATADINE
     Indication: RASH
     Route: 065
     Dates: start: 20160523, end: 20160602
  38. LORATADINE. [Concomitant]
     Active Substance: LORATADINE
     Indication: RASH
  39. XARELTO [Concomitant]
     Active Substance: RIVAROXABAN
     Indication: PULMONARY EMBOLISM
     Route: 065
     Dates: start: 20160802

REACTIONS (1)
  - Bacterial sepsis [Recovered/Resolved]

NARRATIVE: CASE EVENT DATE: 20160620
